FAERS Safety Report 25498720 (Version 1)
Quarter: 2025Q3

REPORT INFORMATION
  Report Type: Spontaneous
  Country: TH (occurrence: TH)
  Receive Date: 20250701
  Receipt Date: 20250701
  Transmission Date: 20251020
  Serious: Yes (Other)
  Sender: AUROBINDO
  Company Number: TH-AUROBINDO-AUR-APL-2025-031947

PATIENT
  Age: 28 Year
  Sex: Female

DRUGS (17)
  1. AMPICILLIN SODIUM\SULBACTAM SODIUM [Suspect]
     Active Substance: AMPICILLIN SODIUM\SULBACTAM SODIUM
     Indication: Escherichia infection
     Dosage: 3 GRAM, EVERY FOUR HOUR
     Route: 065
  2. AMPICILLIN [Suspect]
     Active Substance: AMPICILLIN
     Indication: Sepsis
     Dosage: 2 GRAM, 3 TIMES A DAY
     Route: 065
  3. AMPICILLIN [Suspect]
     Active Substance: AMPICILLIN
     Indication: Postpartum sepsis
  4. CEFIXIME [Suspect]
     Active Substance: CEFIXIME
     Indication: Infection
     Dosage: 2 GRAM, ONCE A DAY
     Route: 065
  5. CLINDAMYCIN [Suspect]
     Active Substance: CLINDAMYCIN
     Indication: Sepsis
     Dosage: 900 MILLIGRAM, EVERY FOUR HOUR
     Route: 065
  6. CLINDAMYCIN [Suspect]
     Active Substance: CLINDAMYCIN
     Indication: Postpartum sepsis
  7. GENTAMICIN [Suspect]
     Active Substance: GENTAMICIN
     Indication: Sepsis
     Dosage: 240 MILLIGRAM, ONCE A DAY
     Route: 065
  8. GENTAMICIN [Suspect]
     Active Substance: GENTAMICIN
     Indication: Postpartum sepsis
  9. METRONIDAZOLE [Suspect]
     Active Substance: METRONIDAZOLE
     Indication: Infection
     Route: 042
  10. AUGMENTIN [Concomitant]
     Active Substance: AMOXICILLIN\CLAVULANATE POTASSIUM
     Indication: Product used for unknown indication
     Route: 048
  11. CEFAZOLIN [Concomitant]
     Active Substance: CEFAZOLIN
     Indication: Sepsis
     Dosage: 2 GRAM, ONCE A DAY
     Route: 065
  12. CEFAZOLIN [Concomitant]
     Active Substance: CEFAZOLIN
     Indication: Postpartum sepsis
  13. DEXAMETHASONE [Concomitant]
     Active Substance: DEXAMETHASONE
     Indication: Sepsis
     Route: 065
  14. DEXAMETHASONE [Concomitant]
     Active Substance: DEXAMETHASONE
     Indication: Postpartum sepsis
  15. ERTAPENEM [Concomitant]
     Active Substance: ERTAPENEM
     Indication: Product used for unknown indication
     Dosage: 1 GRAM, ONCE A DAY
     Route: 042
  16. TERBUTALINE [Concomitant]
     Active Substance: TERBUTALINE
     Indication: Sepsis
     Route: 065
  17. TERBUTALINE [Concomitant]
     Active Substance: TERBUTALINE
     Indication: Postpartum sepsis

REACTIONS (1)
  - Drug ineffective [Unknown]
